FAERS Safety Report 9144341 (Version 2)
Quarter: 2013Q4

REPORT INFORMATION
  Report Type: Spontaneous
  Country: US (occurrence: US)
  Receive Date: 20130306
  Receipt Date: 20131127
  Transmission Date: 20140711
  Serious: Yes (Hospitalization, Other)
  Sender: FDA-Public Use
  Company Number: US-ROCHE-1021590

PATIENT
  Age: 16 Year
  Sex: Male
  Weight: 52.21 kg

DRUGS (3)
  1. ACCUTANE [Suspect]
     Indication: ACNE
     Route: 048
     Dates: start: 199912, end: 200004
  2. ACCUTANE [Suspect]
     Route: 048
     Dates: start: 200103, end: 200107
  3. IBUPROFEN/PARACETAMOL [Concomitant]

REACTIONS (6)
  - Crohn^s disease [Unknown]
  - Inflammatory bowel disease [Unknown]
  - Stress [Unknown]
  - Small intestinal obstruction [Unknown]
  - Anal fistula [Unknown]
  - Depression [Unknown]
